FAERS Safety Report 6623904-8 (Version None)
Quarter: 2010Q1

REPORT INFORMATION
  Report Type: 
  Country: None (occurrence: None)
  Receive Date: 20100305
  Receipt Date: 20100222
  Transmission Date: 20100710
  Serious: Yes (Hospitalization)
  Sender: FDA-Public Use
  Company Number: VISP-NO-1002S-0096

PATIENT
  Age: 50 Year
  Sex: Female

DRUGS (3)
  1. VISIPAQUE [Suspect]
     Indication: OCCIPITAL NEURALGIA
     Dosage: 100 ML, SINGLE DOSE, I .V.
     Route: 042
     Dates: start: 20100125, end: 20100125
  2. CARBAMAZEPINE [Suspect]
     Indication: OCCIPITAL NEURALGIA
     Dosage: 600 MG, P.O.
     Route: 048
     Dates: start: 20091227, end: 20100203
  3. DROSPIRENONE AND ETHINYL ESTRADIOL [Concomitant]

REACTIONS (2)
  - HEPATITIS TOXIC [None]
  - HYPERSENSITIVITY [None]
